FAERS Safety Report 5278840-9 (Version None)
Quarter: 2007Q1

REPORT INFORMATION
  Report Type: 
  Country: None (occurrence: None)
  Receive Date: 20061208
  Receipt Date: 20060323
  Transmission Date: 20070707
  Serious: Yes (Hospitalization)
  Sender: FDA-Public Use
  Company Number: 2005UW16348

PATIENT
  Age: 71 Year
  Sex: Female
  Weight: 73.0291 kg

DRUGS (1)
  1. CRESTOR [Suspect]
     Indication: HYPERCHOLESTEROLAEMIA
     Dosage: 5 MG HS PO
     Route: 048
     Dates: start: 20050727, end: 20050822

REACTIONS (1)
  - HEPATITIS [None]
